FAERS Safety Report 7947888-5 (Version None)
Quarter: 2011Q4

REPORT INFORMATION
  Report Type: 
  Country: None (occurrence: None)
  Receive Date: 20111123
  Receipt Date: 20111107
  Transmission Date: 20120403
  Serious: Yes (Hospitalization)
  Sender: FDA-Public Use
  Company Number: 1000025576

PATIENT
  Age: 58 Year
  Sex: Male

DRUGS (3)
  1. CIATYL-(Z) TROPEN (ZUCLOPENTHIXOL DIHYDROCHLORIDE) (DROPS (FOR ORAL US [Suspect]
     Route: 048
     Dates: start: 20110727, end: 20110728
  2. PIRENZEPIN (PIRENZEPINE DIHYDROCHLORIDE) [Suspect]
     Indication: SALIVARY HYPERSECRETION
     Dosage: 100 MG (50 MG, 2 IN 1 D), ORAL
     Route: 048
     Dates: start: 20110630, end: 20110808
  3. CITALOPRAM HYDROBROMIDE [Suspect]
     Indication: AGGRESSION
     Dosage: 20 MG (20 MG, 1 IN 1 D), ORAL
     Route: 048
     Dates: start: 20110630, end: 20110808

REACTIONS (26)
  - ANXIETY [None]
  - DYSPHAGIA [None]
  - DRY SKIN [None]
  - ELECTROCARDIOGRAM REPOLARISATION ABNORMALITY [None]
  - HAEMORRHAGE [None]
  - URINARY TRACT INFECTION [None]
  - HALLUCINATION, VISUAL [None]
  - FAECAL INCONTINENCE [None]
  - INCREASED BRONCHIAL SECRETION [None]
  - BEDRIDDEN [None]
  - ENCEPHALOPATHY [None]
  - DELIRIUM [None]
  - RESTLESSNESS [None]
  - POTENTIATING DRUG INTERACTION [None]
  - DIZZINESS [None]
  - INFARCTION [None]
  - MUSCLE SPASMS [None]
  - URINARY INCONTINENCE [None]
  - TACHYCARDIA [None]
  - ELECTROCARDIOGRAM QT PROLONGED [None]
  - CEREBELLAR ATROPHY [None]
  - FEAR [None]
  - MUSCULAR WEAKNESS [None]
  - BODY TEMPERATURE DECREASED [None]
  - MYOCLONUS [None]
  - HYPERTHERMIA [None]
